FAERS Safety Report 12362671 (Version 2)
Quarter: 2019Q4

REPORT INFORMATION
  Report Type: Spontaneous
  Country: US (occurrence: US)
  Receive Date: 20160512
  Receipt Date: 20191213
  Transmission Date: 20200122
  Serious: No
  Sender: FDA-Public Use
  Company Number: US-UCBSA-2015042217

PATIENT
  Sex: Female

DRUGS (1)
  1. CIMZIA [Suspect]
     Active Substance: CERTOLIZUMAB PEGOL
     Indication: RHEUMATOID ARTHRITIS
     Dosage: 400 MG, UNK
     Dates: start: 20151205

REACTIONS (3)
  - Anxiety [Recovered/Resolved]
  - Peripheral swelling [Recovered/Resolved]
  - Oesophageal oedema [Recovered/Resolved]

NARRATIVE: CASE EVENT DATE: 201512
